FAERS Safety Report 8000674-2 (Version None)
Quarter: 2011Q4

REPORT INFORMATION
  Report Type: 
  Country: None (occurrence: None)
  Receive Date: 20111222
  Receipt Date: 20111214
  Transmission Date: 20120403
  Serious: Yes (Hospitalization)
  Sender: FDA-Public Use
  Company Number: US-BAYER-2011-075470

PATIENT
  Age: 27 Year
  Sex: Female

DRUGS (6)
  1. YAZ [Suspect]
     Indication: CONTRACEPTION
     Dosage: UNK
     Dates: start: 20081001, end: 20100101
  2. IMITREX [Concomitant]
  3. LIDEX [Concomitant]
  4. LOESTRIN 1.5/30 [Concomitant]
     Dosage: UNK
     Dates: start: 20090406
  5. NEXIUM [Concomitant]
  6. XANAX [Concomitant]

REACTIONS (1)
  - GALLBLADDER INJURY [None]
